FAERS Safety Report 7577062-6 (Version None)
Quarter: 2011Q2

REPORT INFORMATION
  Report Type: 
  Country: None (occurrence: None)
  Receive Date: 20110628
  Receipt Date: 20090625
  Transmission Date: 20111010
  Serious: Yes (Other)
  Sender: FDA-Public Use
  Company Number: US-BAYER-200924268NA

PATIENT
  Age: 45 Year
  Sex: Male
  Weight: 92 kg

DRUGS (12)
  1. CEFAZOLIN [Concomitant]
     Dosage: 1 G, UNK
     Route: 042
     Dates: start: 20041214
  2. GENTAMYCIN SULFATE [Concomitant]
     Dosage: 80 MG, UNK
     Route: 042
     Dates: start: 20041214
  3. TRASYLOL [Suspect]
     Indication: PRODUCT USED FOR UNKNOWN INDICATION
     Dosage: 1 ML TEST DOSE, 200ML BOLUS, 50ML/HR INFUSION
     Route: 042
     Dates: start: 20041214, end: 20041214
  4. FUROSEMIDE [Concomitant]
     Dosage: 20 MG, BID
     Route: 048
     Dates: start: 20030101, end: 20041201
  5. DIGOXIN [Concomitant]
     Dosage: 0.125 MG, ONCE
     Route: 048
     Dates: start: 20030101
  6. LASIX [Concomitant]
     Dosage: UNK
     Route: 048
     Dates: start: 19970101, end: 20040901
  7. LOVASTATIN [Concomitant]
     Dosage: 10 MG, ONCE
     Route: 048
     Dates: start: 20030101
  8. HEPARIN [Concomitant]
     Dosage: 20, 000 UNITS
     Dates: start: 20041214
  9. ASPIRIN [Concomitant]
     Dosage: 5 GRAINS DAILY
     Route: 048
  10. PROTAMINE SULFATE [Concomitant]
     Dosage: 220 MG, UNK
     Dates: start: 20041214, end: 20041214
  11. PLAVIX [Concomitant]
     Dosage: 75 MG, ONCE
     Route: 048
     Dates: start: 19930101, end: 20041208
  12. NAPROXEN [Concomitant]
     Dosage: UNK
     Route: 048
     Dates: start: 19970101, end: 20040901

REACTIONS (12)
  - ANHEDONIA [None]
  - EMOTIONAL DISTRESS [None]
  - INJURY [None]
  - CARDIOGENIC SHOCK [None]
  - ANXIETY [None]
  - STRESS [None]
  - RENAL INJURY [None]
  - FEAR [None]
  - RENAL FAILURE [None]
  - UNEVALUABLE EVENT [None]
  - RENAL IMPAIRMENT [None]
  - PAIN [None]
